FAERS Safety Report 8572688-5 (Version None)
Quarter: 2012Q3

REPORT INFORMATION
  Report Type: 
  Country: None (occurrence: None)
  Receive Date: 20120806
  Receipt Date: 20120730
  Transmission Date: 20120928
  Serious: Yes (Hospitalization)
  Sender: FDA-Public Use
  Company Number: FR-PFIZER INC-2012183505

PATIENT
  Age: 65 Year
  Sex: Male

DRUGS (12)
  1. VFEND [Suspect]
     Indication: ASPERGILLOSIS
     Dosage: 400 MG DAILY
     Route: 042
     Dates: start: 20120611, end: 20120614
  2. HYDROCORTISONE [Suspect]
     Dosage: 50 MG, 4X/DAY
     Route: 042
     Dates: start: 20120609, end: 20120614
  3. LASIX [Suspect]
     Dosage: 20 MG, 3X/DAY
     Route: 042
     Dates: start: 20120612, end: 20120614
  4. BACTRIM [Concomitant]
     Indication: PULMONARY FIBROSIS
  5. AMIKACIN [Concomitant]
     Dosage: UNK
     Route: 042
     Dates: start: 20120609, end: 20120610
  6. METHYLPREDNISOLONE [Concomitant]
     Dosage: UNK
     Route: 042
     Dates: start: 20120613
  7. BACTRIM [Concomitant]
     Indication: SCLERODERMA
     Dosage: UNK
     Dates: start: 20110101
  8. CAPTOPRIL [Concomitant]
     Dosage: UNK
     Route: 048
     Dates: end: 20120612
  9. CELL CEPT [Concomitant]
     Indication: SCLERODERMA
     Dosage: UNK
     Dates: start: 20110101
  10. PIPERACILLIN AND TAZOBACTAM [Concomitant]
     Dosage: UNK
     Route: 042
     Dates: start: 20120609, end: 20120615
  11. TERBUTALINE [Concomitant]
     Dosage: UNK
     Dates: start: 20120611, end: 20120625
  12. CELL CEPT [Concomitant]
     Indication: PULMONARY FIBROSIS

REACTIONS (1)
  - PANCREATITIS [None]
